FAERS Safety Report 12380630 (Version 1)
Quarter: 2016Q2

REPORT INFORMATION
  Report Type: Spontaneous
  Country: US (occurrence: None)
  Receive Date: 20160517
  Receipt Date: 20160517
  Transmission Date: 20160815
  Serious: Yes (Other)
  Sender: FDA-Public Use
  Company Number: None

PATIENT
  Age: 63 Year
  Sex: Female
  Weight: 71.22 kg

DRUGS (10)
  1. HARVONI [Suspect]
     Active Substance: LEDIPASVIR\SOFOSBUVIR
     Indication: HEPATITIS C
     Dosage: 28 TABLET (S) IN THE MORNING TAKEN BY MOUTH
     Route: 048
     Dates: start: 20160425, end: 20160516
  2. CRANBERRY TAB [Concomitant]
  3. ASPIRIN. [Concomitant]
     Active Substance: ASPIRIN
  4. POTASSIUM CHLORIDE ER [Concomitant]
     Active Substance: POTASSIUM CHLORIDE
  5. ATENOLOL. [Concomitant]
     Active Substance: ATENOLOL
  6. MULTIVITAMIN [Concomitant]
     Active Substance: VITAMINS
  7. BENADRYL [Concomitant]
     Active Substance: DIPHENHYDRAMINE HYDROCHLORIDE
  8. IBUPROFEN. [Concomitant]
     Active Substance: IBUPROFEN
  9. PRAVASTATIN [Concomitant]
     Active Substance: PRAVASTATIN\PRAVASTATIN SODIUM
  10. AMLODIPINE BESYLATE. [Concomitant]
     Active Substance: AMLODIPINE BESYLATE

REACTIONS (2)
  - Pain [None]
  - Urticaria [None]

NARRATIVE: CASE EVENT DATE: 20160425
